FAERS Safety Report 4287749-9 (Version None)
Quarter: 2004Q1

REPORT INFORMATION
  Report Type: 
  Country: None (occurrence: None)
  Receive Date: 20040205
  Receipt Date: 20020715
  Transmission Date: 20041129
  Serious: Yes (Life-Threatening, Hospitalization)
  Sender: FDA-Public Use
  Company Number: B01200201699

PATIENT
  Age: 80 Year
  Sex: Female

DRUGS (3)
  1. CLOPIDOGREL / ASPIRIN) - [Suspect]
     Indication: TRANSIENT ISCHAEMIC ATTACK
     Dosage: 75 MG CLOPIDOGREL + 75 MG ASPIRIN DAILY ORAL
     Route: 048
     Dates: start: 20020114, end: 20020713
  2. ZOCOR [Concomitant]
  3. ERGENYL CHRONO (VALPROATE SODIUM/ VALPROATE ACID) [Concomitant]

REACTIONS (6)
  - BENIGN GASTROINTESTINAL NEOPLASM [None]
  - COLON ADENOMA [None]
  - GASTROINTESTINAL DISORDER [None]
  - GASTROINTESTINAL HAEMORRHAGE [None]
  - HAEMOGLOBIN DECREASED [None]
  - RECTAL HAEMORRHAGE [None]
